FAERS Safety Report 23346492 (Version 1)
Quarter: 2023Q4

REPORT INFORMATION
  Report Type: Spontaneous
  Country: GB (occurrence: GB)
  Receive Date: 20231228
  Receipt Date: 20231228
  Transmission Date: 20240109
  Serious: Yes (Hospitalization)
  Sender: FDA-Public Use
  Company Number: GB-MHRA-INPE834F414-DC8D-4EA8-8FE5-3369D913BA23

PATIENT
  Age: 54 Year
  Sex: Male
  Weight: 106 kg

DRUGS (13)
  1. LORATADINE [Suspect]
     Active Substance: LORATADINE
     Indication: Skin lesion
     Dosage: 10 MILLIGRAM, UNK
     Route: 048
  2. APIXABAN [Concomitant]
     Active Substance: APIXABAN
     Indication: Product used for unknown indication
     Dosage: 5 MILLIGRAM 2 DOSE
     Route: 065
     Dates: start: 20230201
  3. ASPIRIN [Concomitant]
     Active Substance: ASPIRIN
     Indication: Product used for unknown indication
     Route: 065
     Dates: start: 20230201, end: 20230201
  4. ATORVASTATIN [Concomitant]
     Active Substance: ATORVASTATIN
     Indication: Product used for unknown indication
     Dosage: AT NIGHT
     Route: 065
     Dates: start: 20230417
  5. BISOPROLOL [Concomitant]
     Active Substance: BISOPROLOL\BISOPROLOL FUMARATE
     Indication: Product used for unknown indication
     Dosage: 2 DOSE5 MILLIGRAM
     Route: 065
     Dates: start: 20230201
  6. BUTYLSCOPOLAMINE BROMIDE [Concomitant]
     Active Substance: BUTYLSCOPOLAMINE BROMIDE
     Indication: Product used for unknown indication
     Dosage: WHEN REQUIRED
     Route: 065
     Dates: start: 20230217
  7. COCODAMOL [Concomitant]
     Active Substance: ACETAMINOPHEN\CODEINE PHOSPHATE
     Indication: Product used for unknown indication
     Dosage: TAKE ONE OR TWO UP TO FOUR TIMES A DAY WHEN NEEDED.
     Route: 065
     Dates: start: 20230201
  8. DIAZEPAM [Concomitant]
     Active Substance: DIAZEPAM
     Indication: Product used for unknown indication
     Route: 065
     Dates: start: 20230223
  9. DIAZEPAM [Concomitant]
     Active Substance: DIAZEPAM
     Dosage: AS DIRECTED (WEANING)
     Route: 065
     Dates: start: 20230418
  10. METFORMIN [Concomitant]
     Active Substance: METFORMIN HYDROCHLORIDE
     Indication: Product used for unknown indication
     Route: 065
     Dates: start: 20230303
  11. OMEPRAZOLE [Concomitant]
     Active Substance: OMEPRAZOLE
     Indication: Product used for unknown indication
     Dosage: TWO DAILY
     Route: 065
     Dates: start: 20230119
  12. PENICILLIN V [Concomitant]
     Active Substance: PENICILLIN V
     Indication: Product used for unknown indication
     Route: 065
     Dates: start: 20230119
  13. SENNOSIDES [Concomitant]
     Active Substance: SENNOSIDES
     Indication: Product used for unknown indication
     Dosage: TWO 5ML SPOONFULS AT NIGHT
     Route: 065
     Dates: start: 20230320

REACTIONS (2)
  - Tachycardia [Recovering/Resolving]
  - Atrial fibrillation [Unknown]
